FAERS Safety Report 9490086 (Version 2)
Quarter: 2014Q1

REPORT INFORMATION
  Report Type: Spontaneous
  Country: GB (occurrence: GB)
  Receive Date: 20130829
  Receipt Date: 20140130
  Transmission Date: 20141002
  Serious: Yes (Other)
  Sender: FDA-Public Use
  Company Number: GB-MYLANLABS-2013S1018713

PATIENT
  Age: 84 Year
  Sex: Male

DRUGS (1)
  1. TAMSULOSIN [Suspect]
     Indication: PROSTATISM
     Dates: start: 20130723, end: 20130731

REACTIONS (1)
  - Visual acuity reduced [Recovered/Resolved]
